FAERS Safety Report 7610522-8 (Version None)
Quarter: 2011Q3

REPORT INFORMATION
  Report Type: 
  Country: None (occurrence: None)
  Receive Date: 20110707
  Receipt Date: 20110622
  Transmission Date: 20111222
  Serious: Yes (Other)
  Sender: FDA-Public Use
  Company Number: 2011MA008114

PATIENT
  Age: 44 Year
  Sex: Male

DRUGS (6)
  1. DIAZEPAM [Suspect]
  2. CLOZARIL [Suspect]
     Indication: SCHIZOPHRENIA
     Dates: start: 20001027, end: 20011228
  3. NEFOPAM (NEFOPAM) [Suspect]
  4. VITAMIN B [Concomitant]
  5. ALCOHOL [Concomitant]
  6. DIHYDROCODEINE BITARTRATE INJ [Suspect]

REACTIONS (7)
  - DIZZINESS [None]
  - ALCOHOL USE [None]
  - WEIGHT DECREASED [None]
  - MULTIPLE DRUG OVERDOSE [None]
  - CIRCULATORY COLLAPSE [None]
  - HYPOTENSION [None]
  - NEOPLASM MALIGNANT [None]
